FAERS Safety Report 10098182 (Version 3)
Quarter: 2014Q2

REPORT INFORMATION
  Report Type: Spontaneous
  Country: JP (occurrence: JP)
  Receive Date: 20140423
  Receipt Date: 20140526
  Transmission Date: 20141212
  Serious: Yes (Death, Life-Threatening)
  Sender: FDA-Public Use
  Company Number: JP-ROCHE-1384974

PATIENT
  Age: 69 Year
  Sex: Female
  Weight: 60 kg

DRUGS (7)
  1. HERCEPTIN [Suspect]
     Indication: BREAST CANCER METASTATIC
     Route: 041
     Dates: start: 20051114, end: 200610
  2. HERCEPTIN [Suspect]
     Route: 041
     Dates: start: 20061019, end: 20131010
  3. HERCEPTIN [Suspect]
     Route: 041
     Dates: start: 20131016, end: 20131016
  4. HERCEPTIN [Suspect]
     Route: 041
     Dates: start: 20131024, end: 20140227
  5. PERJETA [Suspect]
     Indication: BREAST CANCER METASTATIC
     Dosage: FORM STRENGTH: 420MG/14ML
     Route: 041
     Dates: start: 20131016, end: 20131016
  6. PERJETA [Suspect]
     Dosage: FORM STRENGTH: 420MG/14ML
     Route: 041
     Dates: start: 20131024, end: 20140227
  7. TAXOTERE [Suspect]
     Indication: BREAST CANCER METASTATIC
     Dosage: DOSAGE IS UNCERTAIN.
     Route: 041
     Dates: start: 20131016, end: 20140227

REACTIONS (2)
  - Death [Fatal]
  - Interstitial lung disease [Not Recovered/Not Resolved]
